FAERS Safety Report 8489725-9 (Version None)
Quarter: 2012Q3

REPORT INFORMATION
  Report Type: 
  Country: None (occurrence: None)
  Receive Date: 20120705
  Receipt Date: 20120626
  Transmission Date: 20120928
  Serious: Yes (Other)
  Sender: FDA-Public Use
  Company Number: FR-GLAXOSMITHKLINE-B0810665A

PATIENT
  Sex: Female

DRUGS (4)
  1. VALACYCLOVIR HYDROCHLORIDE [Suspect]
     Indication: PROPHYLAXIS
     Dosage: 500MG TWICE PER DAY
     Route: 048
     Dates: start: 20120329
  2. FLUDARABINE PHOSPHATE [Concomitant]
     Indication: CHEMOTHERAPY
  3. CYCLOPHOSPHAMIDE [Concomitant]
     Indication: CHEMOTHERAPY
  4. RITUXIMAB [Concomitant]
     Indication: CHEMOTHERAPY

REACTIONS (2)
  - DRUG ADMINISTRATION ERROR [None]
  - HERPES ZOSTER [None]
